FAERS Safety Report 12923431 (Version 1)
Quarter: 2016Q4

REPORT INFORMATION
  Report Type: Other
  Country: GB (occurrence: GB)
  Receive Date: 20161109
  Receipt Date: 20161109
  Transmission Date: 20170207
  Serious: Yes (Other)
  Sender: FDA-Public Use
  Company Number: GB-PERRIGO-16GB021512

PATIENT

DRUGS (15)
  1. PARACETAMOL [Concomitant]
     Active Substance: ACETAMINOPHEN
     Dates: start: 20161013, end: 20161020
  2. PEPPERMINT OIL [Concomitant]
     Active Substance: PEPPERMINT OIL
     Dates: start: 20161013, end: 20161020
  3. IBUPROFEN. [Suspect]
     Active Substance: IBUPROFEN
     Indication: PRODUCT USED FOR UNKNOWN INDICATION
     Dosage: UNK
     Route: 065
     Dates: start: 20161021
  4. E45 [Concomitant]
     Active Substance: LANOLIN\LIGHT MINERAL OIL\PARAFFIN
     Indication: DRY SKIN
     Dosage: APPLY TO DRY SKIN
     Route: 061
     Dates: start: 20160922, end: 20161006
  5. SALBUTAMOL [Concomitant]
     Active Substance: ALBUTEROL
     Dosage: INHALE 1-2 PUFFS UP TO FOUR TIMES A DAY.
     Route: 055
     Dates: start: 20161013
  6. CLENIL MODULITE [Concomitant]
     Active Substance: BECLOMETHASONE DIPROPIONATE
     Dosage: PUFFS.
     Route: 055
     Dates: start: 20161013
  7. METOCLOPRAMIDE. [Concomitant]
     Active Substance: METOCLOPRAMIDE
     Dates: start: 20161013, end: 20161018
  8. TERBINAFINE. [Concomitant]
     Active Substance: TERBINAFINE
     Indication: TINEA PEDIS
     Dosage: APPLY ONCE TO TWICE A DAY.
     Dates: start: 20160927, end: 20161004
  9. ZOPICLONE [Concomitant]
     Active Substance: ZOPICLONE
     Dates: start: 20160915, end: 20160918
  10. PROMETHAZINE HYDROCHLORIDE. [Concomitant]
     Active Substance: PROMETHAZINE HYDROCHLORIDE
     Dates: start: 20160818, end: 20160822
  11. BUPRENORPHINE. [Concomitant]
     Active Substance: BUPRENORPHINE
     Dosage: VARIABLE DOSE
     Dates: start: 20161006, end: 20161008
  12. KALMS                              /00796301/ [Concomitant]
     Dates: start: 20160802, end: 20160809
  13. LOFEXIDINE [Concomitant]
     Dosage: VARIABLE DOSE
     Dates: start: 20160816, end: 20160820
  14. CONCERTA LP [Concomitant]
     Active Substance: METHYLPHENIDATE HYDROCHLORIDE
     Dates: start: 20160715
  15. NAPROXEN. [Concomitant]
     Active Substance: NAPROXEN
     Dates: start: 20160726, end: 20160801

REACTIONS (1)
  - Dyspnoea [Not Recovered/Not Resolved]

NARRATIVE: CASE EVENT DATE: 20161022
